FAERS Safety Report 4678311-4 (Version None)
Quarter: 2005Q2

REPORT INFORMATION
  Report Type: 
  Country: None (occurrence: None)
  Receive Date: 20050531
  Receipt Date: 20050531
  Transmission Date: 20051028
  Serious: Yes (Life-Threatening, Hospitalization, Disabling)
  Sender: FDA-Public Use
  Company Number: None

PATIENT
  Age: 30 Year
  Sex: Female
  Weight: 93.441 kg

DRUGS (7)
  1. PAXIL CR [Suspect]
     Indication: DEPRESSION
     Dosage: 25 MG 1 DAILY ORAL
     Route: 048
     Dates: start: 20040101, end: 20050425
  2. PAXIL CR [Suspect]
     Indication: POST-TRAUMATIC STRESS DISORDER
     Dosage: 25 MG 1 DAILY ORAL
     Route: 048
     Dates: start: 20040101, end: 20050425
  3. PAXIL CR [Suspect]
     Indication: DEPRESSION
     Dosage: 12.5 MG 1 DAILY ORAL
     Route: 048
     Dates: start: 20050117, end: 20050425
  4. PAXIL CR [Suspect]
     Indication: POST-TRAUMATIC STRESS DISORDER
     Dosage: 12.5 MG 1 DAILY ORAL
     Route: 048
     Dates: start: 20050117, end: 20050425
  5. DOXYCYCLINE [Concomitant]
  6. MAXALT [Concomitant]
  7. ZANAFLEX [Concomitant]

REACTIONS (26)
  - ABNORMAL BEHAVIOUR [None]
  - AGGRESSION [None]
  - AMNESIA [None]
  - ANXIETY [None]
  - COLD SWEAT [None]
  - CONDITION AGGRAVATED [None]
  - CONFUSIONAL STATE [None]
  - CRYING [None]
  - DYSPHEMIA [None]
  - EATING DISORDER [None]
  - FATIGUE [None]
  - FEELING ABNORMAL [None]
  - FEELING OF DESPAIR [None]
  - FLASHBACK [None]
  - INSOMNIA [None]
  - MIGRAINE [None]
  - MOOD ALTERED [None]
  - NIGHTMARE [None]
  - PERSONALITY DISORDER [None]
  - POST-TRAUMATIC STRESS DISORDER [None]
  - RENAL IMPAIRMENT [None]
  - SUICIDE ATTEMPT [None]
  - THINKING ABNORMAL [None]
  - TREMOR [None]
  - VOMITING [None]
  - WEIGHT DECREASED [None]
